FAERS Safety Report 23057303 (Version 1)
Quarter: 2023Q4

REPORT INFORMATION
  Report Type: Spontaneous
  Country: US (occurrence: US)
  Receive Date: 20231012
  Receipt Date: 20231012
  Transmission Date: 20240110
  Serious: No
  Sender: FDA-Public Use
  Company Number: US-BoehringerIngelheim-2023-BI-265964

PATIENT

DRUGS (1)
  1. JARDIANCE [Suspect]
     Active Substance: EMPAGLIFLOZIN
     Indication: Product used for unknown indication

REACTIONS (9)
  - Nausea [Unknown]
  - Headache [Unknown]
  - Dizziness [Unknown]
  - Loss of consciousness [Unknown]
  - Chest pain [Unknown]
  - Chest pain [Unknown]
  - Abdominal pain upper [Unknown]
  - Vomiting [Unknown]
  - Gait disturbance [Unknown]
